FAERS Safety Report 15812716 (Version 5)
Quarter: 2019Q3

REPORT INFORMATION
  Report Type: Report from Study
  Country: US (occurrence: US)
  Receive Date: 20190111
  Receipt Date: 20190729
  Transmission Date: 20191004
  Serious: Yes (Other)
  Sender: FDA-Public Use
  Company Number: US-SA-2018SA218161

PATIENT
  Age: 31 Year
  Sex: Female

DRUGS (7)
  1. TYSABRI [Concomitant]
     Active Substance: NATALIZUMAB
  2. REBIF [Concomitant]
     Active Substance: INTERFERON BETA-1A
  3. ALEMTUZUMAB [Suspect]
     Active Substance: ALEMTUZUMAB
     Indication: MULTIPLE SCLEROSIS
     Dosage: 12 MG, QD
     Route: 041
     Dates: start: 20180730, end: 20180802
  4. METHYLPREDNISOLONE SODIUM SUCCINATE. [Suspect]
     Active Substance: METHYLPREDNISOLONE SODIUM SUCCINATE
     Dosage: UNK
     Dates: start: 20180730, end: 20180802
  5. BENADRYL [Concomitant]
     Active Substance: DIPHENHYDRAMINE HYDROCHLORIDE
     Indication: PREMEDICATION
  6. ALEMTUZUMAB [Suspect]
     Active Substance: ALEMTUZUMAB
     Dosage: 12 MG, QD
     Route: 041
     Dates: start: 20180807, end: 20180807
  7. METHYLPREDNISOLONE SODIUM SUCCINATE. [Suspect]
     Active Substance: METHYLPREDNISOLONE SODIUM SUCCINATE
     Dosage: UNK
     Dates: start: 20180807, end: 20180807

REACTIONS (17)
  - Peripheral swelling [Recovered/Resolved]
  - Haemolytic anaemia [Unknown]
  - Steroid withdrawal syndrome [Recovered/Resolved]
  - Hyperacusis [Recovered/Resolved]
  - Rash generalised [Recovered/Resolved]
  - Urticaria [Recovering/Resolving]
  - Irritability [Recovered/Resolved]
  - Generalised oedema [Recovering/Resolving]
  - Condition aggravated [Recovering/Resolving]
  - Photophobia [Recovered/Resolved]
  - Pruritus [Recovering/Resolving]
  - Dizziness [Recovering/Resolving]
  - Fatigue [Recovered/Resolved]
  - Pyrexia [Recovered/Resolved]
  - Fatigue [Recovering/Resolving]
  - Oedema peripheral [Recovered/Resolved]
  - Fungal infection [Recovered/Resolved]

NARRATIVE: CASE EVENT DATE: 201808
